FAERS Safety Report 10513122 (Version 3)
Quarter: 2015Q1

REPORT INFORMATION
  Report Type: Spontaneous
  Country: CA (occurrence: GB)
  Receive Date: 20141013
  Receipt Date: 20150126
  Transmission Date: 20150720
  Serious: Yes (Other)
  Sender: FDA-Public Use
  Company Number: SE-MERCK-1410SWE003440

PATIENT
  Age: 73 Year
  Sex: Male

DRUGS (2)
  1. OXAZEPAM. [Concomitant]
     Active Substance: OXAZEPAM
  2. FINASTERIDE. [Suspect]
     Active Substance: FINASTERIDE
     Dosage: 5 MG DAILY
     Route: 048

REACTIONS (1)
  - Generalised tonic-clonic seizure [Unknown]
